FAERS Safety Report 7934893-8 (Version None)
Quarter: 2011Q4

REPORT INFORMATION
  Report Type: 
  Country: None (occurrence: None)
  Receive Date: 20111122
  Receipt Date: 20111121
  Transmission Date: 20120403
  Serious: Yes (Hospitalization)
  Sender: FDA-Public Use
  Company Number: IT-BAYER-2011-112383

PATIENT
  Age: 28 Year
  Sex: Female

DRUGS (2)
  1. ZOLPIDEM TARTRATE [Suspect]
     Indication: SUICIDE ATTEMPT
     Dosage: DAILY DOSE 150 MG
     Route: 048
     Dates: start: 20111031, end: 20111031
  2. ASPIRIN [Suspect]
     Indication: SUICIDE ATTEMPT
     Dosage: DAILY DOSE 1 G
     Route: 048
     Dates: start: 20111031, end: 20111031

REACTIONS (2)
  - MYDRIASIS [None]
  - SOPOR [None]
